FAERS Safety Report 11883260 (Version 3)
Quarter: 2016Q1

REPORT INFORMATION
  Report Type: Spontaneous
  Country: JP (occurrence: JP)
  Receive Date: 20151231
  Receipt Date: 20160301
  Transmission Date: 20160526
  Serious: Yes (Hospitalization)
  Sender: FDA-Public Use
  Company Number: JP-BAYER-2015-496174

PATIENT
  Age: 38 Year
  Sex: Male

DRUGS (1)
  1. ACETYLSALICYLIC ACID({=100 MG) [Suspect]
     Active Substance: ASPIRIN
     Indication: RETINAL ARTERY OCCLUSION
     Dosage: 100 MG, QD
     Route: 048
     Dates: start: 201504, end: 2015

REACTIONS (6)
  - Abdominal pain upper [Recovering/Resolving]
  - Splenic haemorrhage [Recovering/Resolving]
  - Haemorrhagic anaemia [Recovering/Resolving]
  - Epigastric discomfort [Recovering/Resolving]
  - Splenic rupture [Recovering/Resolving]
  - Internal haemorrhage [Recovering/Resolving]

NARRATIVE: CASE EVENT DATE: 201507
